FAERS Safety Report 8327757-1 (Version None)
Quarter: 2012Q2

REPORT INFORMATION
  Report Type: 
  Country: None (occurrence: None)
  Receive Date: 20120502
  Receipt Date: 20120430
  Transmission Date: 20120825
  Serious: No
  Sender: FDA-Public Use
  Company Number: US-PFIZER INC-2012106297

PATIENT
  Sex: Male
  Weight: 107 kg

DRUGS (3)
  1. NAPROXEN (ALEVE) [Concomitant]
     Indication: BACK PAIN
     Dosage: UNK
  2. OXYCODONE [Concomitant]
     Indication: BACK PAIN
     Dosage: UNK
  3. FLECTOR [Suspect]
     Indication: BACK PAIN
     Dosage: UNK
     Route: 061
     Dates: start: 20120427, end: 20120427

REACTIONS (2)
  - MALAISE [None]
  - GASTRIC DISORDER [None]
